FAERS Safety Report 22339415 (Version 2)
Quarter: 2023Q2

REPORT INFORMATION
  Report Type: Report from Study
  Country: FR (occurrence: FR)
  Receive Date: 20230518
  Receipt Date: 20230525
  Transmission Date: 20230721
  Serious: No
  Sender: FDA-Public Use
  Company Number: FR-IPSEN Group, Research and Development-2023-10775

PATIENT
  Age: 8 Year
  Sex: Male
  Weight: 16.6 kg

DRUGS (3)
  1. INCRELEX [Suspect]
     Active Substance: MECASERMIN
     Indication: Primary insulin like growth factor-1 deficiency
     Dosage: BID
     Route: 065
     Dates: start: 20210128
  2. INCRELEX [Suspect]
     Active Substance: MECASERMIN
     Dosage: BID
     Route: 065
     Dates: start: 20210204
  3. INCRELEX [Suspect]
     Active Substance: MECASERMIN
     Dosage: BID
     Route: 065
     Dates: start: 20210211

REACTIONS (1)
  - Lipohypertrophy [Recovered/Resolved]

NARRATIVE: CASE EVENT DATE: 20220921
